FAERS Safety Report 9631339 (Version 2)
Quarter: 2013Q4

REPORT INFORMATION
  Report Type: Spontaneous
  Country: JP (occurrence: JP)
  Receive Date: 20131018
  Receipt Date: 20131202
  Transmission Date: 20140711
  Serious: Yes (Life-Threatening, Hospitalization, Other)
  Sender: FDA-Public Use
  Company Number: JP-ASTRAZENECA-2013SE76420

PATIENT
  Age: 62 Year
  Sex: Female
  Weight: 41 kg

DRUGS (21)
  1. SEROQUEL [Suspect]
     Route: 048
     Dates: end: 201309
  2. PREMINENT [Suspect]
     Indication: HYPERTENSION
     Route: 048
     Dates: end: 20130913
  3. PREMINENT [Suspect]
     Indication: HYPERTENSION
     Route: 048
     Dates: start: 20130914
  4. RENIVACE [Suspect]
     Indication: HYPERTENSION
     Route: 048
     Dates: end: 20130913
  5. RENIVACE [Suspect]
     Indication: HYPERTENSION
     Route: 048
     Dates: start: 20130914
  6. CRESTOR [Concomitant]
     Route: 048
     Dates: end: 201309
  7. FAMOTIDINE [Concomitant]
     Route: 048
     Dates: end: 201309
  8. MILNACIPRAN HYDROCHLORIDE [Concomitant]
     Route: 048
     Dates: end: 201309
  9. LOXONIN [Concomitant]
     Route: 065
     Dates: end: 201309
  10. MUCOSTA [Concomitant]
  11. HYPEN [Concomitant]
  12. BLADDERON [Concomitant]
  13. MERISLON [Concomitant]
  14. EXCELASE [Concomitant]
  15. CEPHADOL [Concomitant]
  16. SEPAZON [Concomitant]
  17. BROTIZOLAM [Concomitant]
     Dates: end: 201307
  18. FLUNITRAZEPAM [Concomitant]
     Dates: end: 201307
  19. GASMOTIN [Concomitant]
  20. BOFUTSUSHOSAN [Concomitant]
     Route: 048
  21. DAIOKANZOTO [Concomitant]
     Route: 048

REACTIONS (5)
  - Intentional overdose [Unknown]
  - Suicide attempt [Unknown]
  - Shock [Recovered/Resolved]
  - Depressed level of consciousness [Unknown]
  - Blood pressure decreased [Recovered/Resolved]
